FAERS Safety Report 13031792 (Version 1)
Quarter: 2016Q4

REPORT INFORMATION
  Report Type: Spontaneous
  Country: US (occurrence: US)
  Receive Date: 20161215
  Receipt Date: 20161215
  Transmission Date: 20170207
  Serious: Yes (Other)
  Sender: FDA-Public Use
  Company Number: US-009507513-1612USA004212

PATIENT
  Age: 63 Year
  Sex: Female

DRUGS (3)
  1. TICE BCG [Suspect]
     Active Substance: BACILLUS CALMETTE-GUERIN SUBSTRAIN TICE LIVE ANTIGEN
     Dosage: UNK
     Dates: start: 20160330
  2. ISONIAZID. [Suspect]
     Active Substance: ISONIAZID
  3. RIFAMPIN. [Suspect]
     Active Substance: RIFAMPIN

REACTIONS (5)
  - Occupational exposure to product [Unknown]
  - Adverse event [Recovering/Resolving]
  - Injection site granuloma [Recovering/Resolving]
  - Tuberculosis [Recovered/Resolved]
  - Accidental exposure to product [Unknown]

NARRATIVE: CASE EVENT DATE: 2016
